FAERS Safety Report 9058472 (Version 1)
Quarter: 2013Q1

REPORT INFORMATION
  Report Type: Spontaneous
  Country: IT (occurrence: IT)
  Receive Date: 20130211
  Receipt Date: 20130211
  Transmission Date: 20140127
  Serious: Yes (Hospitalization)
  Sender: FDA-Public Use
  Company Number: IT-JNJFOC-20130116308

PATIENT
  Age: 10 None
  Sex: Female
  Weight: 40 kg

DRUGS (1)
  1. SERENASE [Suspect]
     Indication: WRONG DRUG ADMINISTERED
     Route: 048
     Dates: start: 20130118, end: 20130120

REACTIONS (5)
  - Tremor [Recovered/Resolved]
  - Vomiting [Recovered/Resolved]
  - Sopor [Recovered/Resolved]
  - Wrong drug administered [Recovered/Resolved]
  - Sluggishness [Unknown]
